FAERS Safety Report 24845532 (Version 1)
Quarter: 2025Q1

REPORT INFORMATION
  Report Type: Spontaneous
  Country: US (occurrence: None)
  Receive Date: 20250115
  Receipt Date: 20250115
  Transmission Date: 20250409
  Serious: No
  Sender: FDA-CTU
  Company Number: None

PATIENT
  Age: 65 Year
  Sex: Male

DRUGS (9)
  1. TOLNAFTATE [Suspect]
     Active Substance: TOLNAFTATE
     Indication: Onychomycosis
     Dosage: OTHER QUANTITY : 1 OUNCE(S);?FREQUENCY : DAILY;?OTHER ROUTE : APPLIED TO TOE NAILS;?
     Route: 050
  2. ROSUVASTATIN [Concomitant]
     Active Substance: ROSUVASTATIN
  3. METOPROLOL [Concomitant]
     Active Substance: METOPROLOL
  4. LOSARTAN [Concomitant]
     Active Substance: LOSARTAN
  5. AMLODIPINE [Concomitant]
     Active Substance: AMLODIPINE BESYLATE
  6. VITAMINS [Concomitant]
     Active Substance: VITAMINS
  7. MAGNESIUM CITRATE [Concomitant]
     Active Substance: MAGNESIUM CITRATE
  8. MELATONIN [Concomitant]
     Active Substance: MELATONIN
  9. DIPHENHYDRAMINE [Concomitant]
     Active Substance: DIPHENHYDRAMINE

REACTIONS (1)
  - Adverse drug reaction [None]
